FAERS Safety Report 7732247-0 (Version None)
Quarter: 2011Q3

REPORT INFORMATION
  Report Type: 
  Country: None (occurrence: None)
  Receive Date: 20110906
  Receipt Date: 20110817
  Transmission Date: 20111222
  Serious: No
  Sender: FDA-Public Use
  Company Number: US-AMGEN-USASP2011042090

PATIENT
  Sex: Female

DRUGS (3)
  1. MACRODANTIN [Concomitant]
  2. PROLIA [Suspect]
     Indication: OSTEOPOROSIS POSTMENOPAUSAL
     Dosage: 60 MG, Q6MO
     Dates: start: 20110815
  3. ANTIHYPERTENSIVES [Concomitant]

REACTIONS (5)
  - SOMNOLENCE [None]
  - NERVOUSNESS [None]
  - PAIN [None]
  - HEADACHE [None]
  - FEELING ABNORMAL [None]
